FAERS Safety Report 20357286 (Version 1)
Quarter: 2022Q1

REPORT INFORMATION
  Report Type: Spontaneous
  Country: JP (occurrence: JP)
  Receive Date: 20220120
  Receipt Date: 20220120
  Transmission Date: 20220423
  Serious: Yes (Hospitalization, Other)
  Sender: FDA-Public Use
  Company Number: JP-NOVARTISPH-NVSJ2022JP001201

PATIENT
  Age: 50 Year
  Sex: Female

DRUGS (2)
  1. AMLODIPINE [Suspect]
     Active Substance: AMLODIPINE BESYLATE
     Indication: Product used for unknown indication
     Dosage: 39 DOSAGE FORM
     Route: 048
  2. AZILSARTAN KAMEDOXOMIL [Suspect]
     Active Substance: AZILSARTAN KAMEDOXOMIL
     Indication: Product used for unknown indication
     Dosage: 38 DOSAGE FORM
     Route: 048

REACTIONS (4)
  - Altered state of consciousness [Recovering/Resolving]
  - Depressed level of consciousness [Recovering/Resolving]
  - Blood pressure decreased [Recovering/Resolving]
  - Intentional overdose [Unknown]
